FAERS Safety Report 13952505 (Version 1)
Quarter: 2017Q3

REPORT INFORMATION
  Report Type: Spontaneous
  Country: US (occurrence: US)
  Receive Date: 20170911
  Receipt Date: 20170911
  Transmission Date: 20171128
  Serious: No
  Sender: FDA-Public Use
  Company Number: US-TEVA-735956ACC

PATIENT
  Sex: Male

DRUGS (3)
  1. PROVIGIL [Concomitant]
     Active Substance: MODAFINIL
     Indication: POOR QUALITY SLEEP
  2. LIDOCAINE PATCH [Concomitant]
     Active Substance: LIDOCAINE
  3. FENTANYL TRANSDERMAL SYSTEM [Suspect]
     Active Substance: FENTANYL
     Indication: PAIN
     Route: 065

REACTIONS (2)
  - Dermatitis contact [Recovered/Resolved]
  - Application site erythema [Recovered/Resolved]
